FAERS Safety Report 10197494 (Version 1)
Quarter: 2014Q2

REPORT INFORMATION
  Report Type: Spontaneous
  Country: US (occurrence: US)
  Receive Date: 20140527
  Receipt Date: 20140527
  Transmission Date: 20141212
  Serious: Yes (Other)
  Sender: FDA-Public Use
  Company Number: US-TEVA-483400USA

PATIENT
  Sex: Female

DRUGS (1)
  1. COPAXONE [Suspect]
     Indication: MULTIPLE SCLEROSIS
     Dates: start: 20120101, end: 20130401

REACTIONS (5)
  - Multiple sclerosis relapse [Unknown]
  - Injection site reaction [Unknown]
  - Discomfort [Unknown]
  - Muscle spasms [Unknown]
  - Pain in extremity [Unknown]
